FAERS Safety Report 19183316 (Version 1)
Quarter: 2021Q2

REPORT INFORMATION
  Report Type: Spontaneous
  Country: US (occurrence: US)
  Receive Date: 20210427
  Receipt Date: 20210427
  Transmission Date: 20210717
  Serious: No
  Sender: FDA-Public Use
  Company Number: US-GLAXOSMITHKLINE-US2021088916

PATIENT
  Sex: Female

DRUGS (1)
  1. NUCALA [Suspect]
     Active Substance: MEPOLIZUMAB
     Indication: PULMONARY VASCULITIS
     Dosage: 100 MG, Z, 3 TIMES MONTHLY
     Dates: start: 20210415

REACTIONS (5)
  - Osteoporosis [Unknown]
  - Product use issue [Unknown]
  - Cystic fibrosis [Not Recovered/Not Resolved]
  - Product use in unapproved indication [Unknown]
  - Gastrooesophageal reflux disease [Not Recovered/Not Resolved]
